FAERS Safety Report 18513488 (Version 1)
Quarter: 2020Q4

REPORT INFORMATION
  Report Type: Spontaneous
  Country: GB (occurrence: GB)
  Receive Date: 20201117
  Receipt Date: 20201117
  Transmission Date: 20210114
  Serious: Yes (Other)
  Sender: FDA-Public Use
  Company Number: NVSC2020GB300565

PATIENT
  Age: 44 Year
  Sex: Female
  Weight: 65 kg

DRUGS (7)
  1. PHENOXYMETHYLPENICILLIN (= PENICILLIN V) [Suspect]
     Active Substance: PENICILLIN V
     Indication: PRODUCT USED FOR UNKNOWN INDICATION
     Dosage: 250 MG
     Route: 048
     Dates: start: 20201023
  2. ASCORBIC ACID. [Concomitant]
     Active Substance: ASCORBIC ACID
     Indication: PRODUCT USED FOR UNKNOWN INDICATION
     Dosage: UNK (1 AMPOULE PAIR)
     Route: 065
     Dates: start: 20201022
  3. CHLORDIAZEPOXIDE. [Concomitant]
     Active Substance: CHLORDIAZEPOXIDE
     Indication: PRODUCT USED FOR UNKNOWN INDICATION
     Dosage: UNK (VARIABLE DOSE)
     Route: 065
     Dates: start: 20201022
  4. THIAMINE. [Concomitant]
     Active Substance: THIAMINE
     Indication: PRODUCT USED FOR UNKNOWN INDICATION
     Dosage: 100 MG
     Route: 065
     Dates: start: 20201022
  5. METHADONE [Concomitant]
     Active Substance: METHADONE HYDROCHLORIDE
     Indication: PRODUCT USED FOR UNKNOWN INDICATION
     Dosage: UNK (VARIABLE DOSE)
     Route: 065
     Dates: start: 20201023
  6. VITAMIN B [Concomitant]
     Active Substance: VITAMIN B
     Indication: PRODUCT USED FOR UNKNOWN INDICATION
     Dosage: UNK (1 AMPOULE PAIR)
     Route: 065
     Dates: start: 20201022
  7. NALOXONE HYDROCHLORIDE. [Concomitant]
     Active Substance: NALOXONE HYDROCHLORIDE
     Indication: PRODUCT USED FOR UNKNOWN INDICATION
     Dosage: 800 UG
     Route: 065
     Dates: start: 20201022

REACTIONS (2)
  - Swelling [Recovering/Resolving]
  - Hypersensitivity [Recovering/Resolving]

NARRATIVE: CASE EVENT DATE: 20201023
